FAERS Safety Report 20209675 (Version 1)
Quarter: 2021Q4

REPORT INFORMATION
  Report Type: Report from Study
  Country: MX (occurrence: MX)
  Receive Date: 20211221
  Receipt Date: 20211221
  Transmission Date: 20220303
  Serious: Yes (Hospitalization, Other)
  Sender: FDA-Public Use
  Company Number: MX-ABBVIE-21K-107-4204530-00

PATIENT
  Sex: Male
  Weight: 82.5 kg

DRUGS (2)
  1. HUMIRA [Suspect]
     Active Substance: ADALIMUMAB
     Indication: Psoriasis
     Route: 058
     Dates: start: 20210322
  2. METFORMIN [Concomitant]
     Active Substance: METFORMIN HYDROCHLORIDE
     Indication: Diabetes mellitus

REACTIONS (4)
  - Venous occlusion [Unknown]
  - Myocardial infarction [Recovering/Resolving]
  - Stress [Unknown]
  - Therapeutic product effect delayed [Recovered/Resolved]

NARRATIVE: CASE EVENT DATE: 20210101
